FAERS Safety Report 5535514-4 (Version None)
Quarter: 2007Q4

REPORT INFORMATION
  Report Type: 
  Country: None (occurrence: None)
  Receive Date: 20071206
  Receipt Date: 20071128
  Transmission Date: 20080405
  Serious: Yes (Other)
  Sender: FDA-Public Use
  Company Number: GB-ROCHE-529617

PATIENT
  Age: 64 Year
  Sex: Female
  Weight: 102 kg

DRUGS (4)
  1. ORLISTAT [Suspect]
     Indication: OBESITY
     Route: 048
     Dates: start: 20020706, end: 20070919
  2. PIZOTIFEN [Concomitant]
     Indication: MIGRAINE
     Route: 048
     Dates: start: 20050101
  3. ALBUTEROL [Concomitant]
  4. REDUCTIL [Concomitant]
     Indication: OBESITY
     Route: 048
     Dates: start: 20070220, end: 20070511

REACTIONS (1)
  - BREAST CANCER [None]
